FAERS Safety Report 6410886-7 (Version None)
Quarter: 2009Q4

REPORT INFORMATION
  Report Type: 
  Country: None (occurrence: None)
  Receive Date: 20091022
  Receipt Date: 20091016
  Transmission Date: 20100525
  Serious: Yes (Hospitalization)
  Sender: FDA-Public Use
  Company Number: PHEH2009US11198

PATIENT
  Sex: Male

DRUGS (16)
  1. AFINITOR [Suspect]
     Indication: RENAL CELL CARCINOMA
     Dosage: 10 MG, UNK
     Route: 048
     Dates: start: 20090801, end: 20090901
  2. FLUDROCORTISONE [Concomitant]
     Indication: ADRENAL INSUFFICIENCY
     Dosage: 0.1 MG, BID
     Route: 048
  3. NORCO [Concomitant]
     Dosage: 10/325 Q4H PRN
     Route: 048
  4. AMLODIPINE [Concomitant]
     Dosage: UNK
     Route: 048
  5. LOSARTAN [Concomitant]
     Dosage: UNK
     Route: 048
  6. DOXAZOSIN MESYLATE [Concomitant]
     Dosage: 8 MG, QD
     Route: 048
  7. CARVEDILOL [Concomitant]
     Dosage: 37.5 MG, BID
     Route: 048
  8. COLCHICINE [Concomitant]
     Dosage: 0.6 MG, PRN
     Route: 048
  9. ALLOPURINOL [Concomitant]
     Dosage: 100 MG, QD
     Route: 048
  10. LORAZEPAM [Concomitant]
     Dosage: 1 MG, TID
     Route: 048
  11. ALBUTEROL SULFATE AND IPRATROPIUM BROMIDE [Concomitant]
     Dosage: 2 PUFFS QID
  12. PLAVIX [Concomitant]
     Dosage: 75 MG, QD
     Route: 048
  13. LASIX [Concomitant]
     Dosage: 80 MG, BID
     Route: 048
  14. SPIRONOLACTONE [Concomitant]
     Dosage: 12.5 MG, QD
     Route: 048
  15. GEMFIBROZIL [Concomitant]
     Dosage: 600 MG, BID
     Route: 048
  16. DILANTIN                                /AUS/ [Concomitant]
     Dosage: 400 MG, QHS
     Route: 048

REACTIONS (8)
  - ANAEMIA [None]
  - BLOOD ALKALINE PHOSPHATASE INCREASED [None]
  - BLOOD CREATININE INCREASED [None]
  - BLOOD UREA INCREASED [None]
  - FATIGUE [None]
  - HAEMOGLOBIN DECREASED [None]
  - HEADACHE [None]
  - RENAL FAILURE ACUTE [None]
